FAERS Safety Report 5232756-2 (Version None)
Quarter: 2007Q1

REPORT INFORMATION
  Report Type: 
  Country: None (occurrence: None)
  Receive Date: 20070206
  Receipt Date: 20070206
  Transmission Date: 20070707
  Serious: Yes (Life-Threatening)
  Sender: FDA-Public Use
  Company Number: None

PATIENT
  Age: 74 Year
  Sex: Male
  Weight: 75 kg

DRUGS (1)
  1. HURRICAINE TOPICAL ANESTHETIC SPRAY (20% BENZOCAINE) [Suspect]
     Indication: LOCAL ANAESTHESIA
     Dosage: 3 SPRAYS  1-2 SECONDS EACH ORAL
     Route: 048
     Dates: start: 20070202

REACTIONS (2)
  - BLOOD METHAEMOGLOBIN PRESENT [None]
  - HYPOXIA [None]
